FAERS Safety Report 4354846-9 (Version None)
Quarter: 2004Q2

REPORT INFORMATION
  Report Type: 
  Country: None (occurrence: None)
  Receive Date: 20040507
  Receipt Date: 20040422
  Transmission Date: 20050107
  Serious: Yes (Life-Threatening, Hospitalization, Other)
  Sender: FDA-Public Use
  Company Number: MY-GLAXOSMITHKLINE-B0331151A

PATIENT
  Age: 29 Year
  Sex: Male

DRUGS (3)
  1. ZINNAT [Suspect]
     Indication: SINUSITIS
     Dosage: 250MG TWICE PER DAY
     Route: 048
     Dates: start: 20040330, end: 20040331
  2. LIGNOCAINE [Concomitant]
  3. LORATADINE [Concomitant]
     Dosage: 10MG PER DAY
     Route: 048
     Dates: start: 20030815

REACTIONS (5)
  - CONJUNCTIVITIS [None]
  - DYSPNOEA [None]
  - HYPERSENSITIVITY [None]
  - PYREXIA [None]
  - RASH GENERALISED [None]
